FAERS Safety Report 22082304 (Version 1)
Quarter: 2023Q1

REPORT INFORMATION
  Report Type: Spontaneous
  Country: ES (occurrence: ES)
  Receive Date: 20230310
  Receipt Date: 20230310
  Transmission Date: 20230418
  Serious: Yes (Life-Threatening, Hospitalization)
  Sender: FDA-Public Use
  Company Number: None

PATIENT
  Age: 66 Year
  Sex: Male
  Weight: 59.7 kg

DRUGS (6)
  1. DARZALEX [Suspect]
     Active Substance: DARATUMUMAB
     Indication: Plasma cell myeloma
     Dosage: 1 DOSIS CADA 7 DIAS
     Route: 058
     Dates: start: 20230125, end: 20230201
  2. VINCRISTINE [Suspect]
     Active Substance: VINCRISTINE
     Indication: Plasma cell myeloma
     Dosage: DOSIS UNICA
     Route: 042
     Dates: start: 20230129, end: 20230129
  3. DOXORUBICIN HYDROCHLORIDE [Suspect]
     Active Substance: DOXORUBICIN HYDROCHLORIDE
     Indication: Plasma cell myeloma
     Dosage: 25 MG/M2 (43 MG) IV TO BE GIVEN IN 24 HOURS ON JANUARY 29 AND 30
     Route: 042
     Dates: start: 20230129, end: 20230130
  4. CYCLOPHOSPHAMIDE [Suspect]
     Active Substance: CYCLOPHOSPHAMIDE
     Indication: Plasma cell myeloma
     Dosage: 380 MG EVERY 12 HOURS FOR 3 DAYS
     Route: 042
     Dates: start: 20230126, end: 20230128
  5. NEULASTA [Concomitant]
     Active Substance: PEGFILGRASTIM
     Indication: Product used for unknown indication
     Dosage: SINGLE DOSE
     Route: 058
     Dates: start: 20230203, end: 20230203
  6. DEXAMETHASONE [Concomitant]
     Active Substance: DEXAMETHASONE
     Indication: Plasma cell myeloma
     Dosage: 20MG DAILY INITIALLY, TAPERING DOWN TO 2MG DAILY
     Route: 048
     Dates: start: 20230117

REACTIONS (2)
  - Septic shock [Recovered/Resolved]
  - Pancytopenia [Not Recovered/Not Resolved]

NARRATIVE: CASE EVENT DATE: 20230203
